FAERS Safety Report 10694998 (Version 1)
Quarter: 2015Q1

REPORT INFORMATION
  Report Type: Spontaneous
  Country: US (occurrence: None)
  Receive Date: 20150106
  Receipt Date: 20150106
  Transmission Date: 20150721
  Serious: Yes (Disabling)
  Sender: FDA-Public Use
  Company Number: None

PATIENT
  Age: 50 Year
  Sex: Female
  Weight: 122.93 kg

DRUGS (2)
  1. LEVAQUIN [Suspect]
     Active Substance: LEVOFLOXACIN
     Indication: BRONCHITIS
     Dosage: OVER 20 YEARS AT VARIOUS TIMES
     Route: 048
  2. LEVAQUIN [Suspect]
     Active Substance: LEVOFLOXACIN
     Indication: OROPHARYNGEAL PAIN
     Dosage: OVER 20 YEARS AT VARIOUS TIMES
     Route: 048

REACTIONS (13)
  - Formication [None]
  - Asthma [None]
  - Anxiety [None]
  - Insomnia [None]
  - Neuropathy peripheral [None]
  - Dysstasia [None]
  - Abasia [None]
  - Myalgia [None]
  - Amnesia [None]
  - Arthritis [None]
  - Peripheral swelling [None]
  - Joint swelling [None]
  - Paraesthesia [None]
